FAERS Safety Report 8264723-9 (Version None)
Quarter: 2012Q2

REPORT INFORMATION
  Report Type: 
  Country: None (occurrence: None)
  Receive Date: 20120406
  Receipt Date: 20120328
  Transmission Date: 20120825
  Serious: Yes (Other)
  Sender: FDA-Public Use
  Company Number: US-BRISTOL-MYERS SQUIBB COMPANY-16484701

PATIENT
  Age: 78 Year
  Sex: Male

DRUGS (1)
  1. GLUCOPHAGE [Suspect]

REACTIONS (3)
  - NEPHROLITHIASIS [None]
  - SEPSIS [None]
  - MYOCARDIAL INFARCTION [None]
